FAERS Safety Report 9307009 (Version 3)
Quarter: 2013Q3

REPORT INFORMATION
  Report Type: Report from Study
  Country: GB (occurrence: GB)
  Receive Date: 20130523
  Receipt Date: 20130719
  Transmission Date: 20140515
  Serious: Yes (Hospitalization)
  Sender: FDA-Public Use
  Company Number: GB-MERCK-1211GBR008118

PATIENT
  Age: 61 Year
  Sex: Male

DRUGS (10)
  1. VORINOSTAT [Suspect]
     Indication: PLASMA CELL MYELOMA
     Dosage: 300 MG, QD ON DAYS 1-7, 15-21
     Route: 048
     Dates: start: 20121012, end: 20121114
  2. VORINOSTAT [Suspect]
     Dosage: 300 MG, QD, DAYS1-7 AND 15-21
     Route: 048
     Dates: start: 20121012, end: 20121129
  3. VORINOSTAT [Suspect]
     Dosage: 200 MG, QD ON DAYS 1-7, 15-21
     Route: 048
     Dates: start: 20121012, end: 20130117
  4. LENALIDOMIDE [Suspect]
     Indication: PLASMA CELL MYELOMA
     Dosage: 10 MG, QD ON DAYS 1-21
     Route: 048
     Dates: start: 20121012, end: 20121114
  5. LENALIDOMIDE [Suspect]
     Dosage: 10 MG, QD, DAYS 1-21
     Route: 048
     Dates: end: 20121129
  6. LENALIDOMIDE [Suspect]
     Dosage: 10 MG, QD, DAYS 1-21
     Route: 048
     Dates: start: 20121012, end: 20130117
  7. CYCLOPHOSPHAMIDE [Suspect]
     Indication: PLASMA CELL MYELOMA
     Dosage: 500 MG, QW
     Route: 048
     Dates: start: 20110902, end: 20120403
  8. DEXAMETHASONE [Suspect]
     Indication: PLASMA CELL MYELOMA
     Dosage: 20 MG, DAYS 1-2, 4-5, 8-9 AND 11-12
     Route: 048
     Dates: start: 20110902, end: 20120331
  9. THALIDOMIDE [Suspect]
     Indication: PLASMA CELL MYELOMA
     Dosage: 100 MG, DAYS 1-21
     Route: 048
     Dates: start: 20110902, end: 20120218
  10. BORTEZOMIB [Suspect]
     Indication: PLASMA CELL MYELOMA
     Dosage: 2-3 MG, DAYS 1,4,8,11
     Route: 042
     Dates: start: 20120207, end: 20120330

REACTIONS (4)
  - Vomiting [Recovered/Resolved]
  - Gastrointestinal disorder [Recovered/Resolved]
  - Lower respiratory tract infection [Recovered/Resolved]
  - Neutropenic sepsis [Recovered/Resolved]
